FAERS Safety Report 4975226-9 (Version None)
Quarter: 2006Q2

REPORT INFORMATION
  Report Type: 
  Country: None (occurrence: None)
  Receive Date: 20060418
  Receipt Date: 20060406
  Transmission Date: 20061013
  Serious: Yes (Death, Life-Threatening)
  Sender: FDA-Public Use
  Company Number: FR-BRISTOL-MYERS SQUIBB COMPANY-13340856

PATIENT
  Age: 26 Year
  Sex: Female

DRUGS (5)
  1. ABILIFY [Suspect]
     Route: 048
     Dates: start: 20060309, end: 20060317
  2. TIAPRIDAL [Suspect]
     Dates: start: 20060303, end: 20060317
  3. SEROPLEX [Suspect]
     Dates: start: 20060303, end: 20060317
  4. IMOVANE [Concomitant]
     Dates: start: 20060309
  5. PRAZEPAM [Concomitant]
     Dosage: DOSAGE: 10 MG TO 40 MG
     Dates: start: 20060309

REACTIONS (4)
  - CARDIAC ARREST [None]
  - CHILLS [None]
  - MALAISE [None]
  - RESPIRATORY ARREST [None]
